FAERS Safety Report 21924869 (Version 2)
Quarter: 2023Q1

REPORT INFORMATION
  Report Type: Report from Study
  Country: JP (occurrence: JP)
  Receive Date: 20230130
  Receipt Date: 20230302
  Transmission Date: 20230418
  Serious: Yes (Death, Other)
  Sender: FDA-Public Use
  Company Number: JP-SAKK-2023SA029961AA

PATIENT
  Age: 83 Year
  Sex: Female
  Weight: 36.8 kg

DRUGS (19)
  1. SARILUMAB [Suspect]
     Active Substance: SARILUMAB
     Indication: Rheumatoid arthritis
     Dosage: 200 MG, QOW
     Route: 058
     Dates: start: 20220816, end: 20230105
  2. IGURATIMOD [Concomitant]
     Active Substance: IGURATIMOD
     Indication: Rheumatoid arthritis
     Dosage: 25 MG/1 DOSE
     Route: 048
     Dates: start: 20230105, end: 20230107
  3. IGURATIMOD [Concomitant]
     Active Substance: IGURATIMOD
     Dosage: 25 MG, QD
     Route: 048
     Dates: start: 20220527, end: 20220816
  4. TELMISARTAN [Concomitant]
     Active Substance: TELMISARTAN
     Indication: Hypertension
     Dosage: 80 MG/1 DOSE
     Route: 048
     Dates: start: 20220510, end: 20230107
  5. ASPIRIN\LANSOPRAZOLE [Concomitant]
     Active Substance: ASPIRIN\LANSOPRAZOLE
     Indication: Angina pectoris
     Dosage: 1 TABLET/1 DOSE
     Route: 048
     Dates: end: 20230107
  6. FEBUXOSTAT [Concomitant]
     Active Substance: FEBUXOSTAT
     Indication: Hyperuricaemia
     Dosage: 10 MG/1 DOSE
     Route: 048
     Dates: start: 20210518, end: 20230107
  7. AMLODIPINE BESYLATE [Concomitant]
     Active Substance: AMLODIPINE BESYLATE
     Indication: Hypertension
     Dosage: 10 MG/1 DOSE
     Route: 048
     Dates: start: 20220510, end: 20230107
  8. ROSUVASTATIN CALCIUM [Concomitant]
     Active Substance: ROSUVASTATIN CALCIUM
     Indication: Hypercholesterolaemia
     Dosage: 2.5 MG/1 DOSE
     Route: 048
     Dates: end: 20230105
  9. MELOXICAM [Concomitant]
     Active Substance: MELOXICAM
     Indication: Rheumatoid arthritis
     Dosage: 10 MG/1 DOSE
     Route: 048
     Dates: start: 20120514, end: 20230107
  10. REBAMIPIDE [Concomitant]
     Active Substance: REBAMIPIDE
     Indication: Gastritis prophylaxis
     Dosage: 200 MG/2 DIVIDED DOSES
     Route: 048
     Dates: start: 20120514, end: 20230107
  11. SULFAMETHOXAZOLE\TRIMETHOPRIM [Concomitant]
     Active Substance: SULFAMETHOXAZOLE\TRIMETHOPRIM
     Indication: Pneumocystis jirovecii pneumonia
     Dosage: 1 TABLET/1 DOSE/WEEK
     Route: 048
     Dates: start: 20220816, end: 20230107
  12. KETOPROFEN [Concomitant]
     Active Substance: KETOPROFEN
     Indication: Periarthritis
     Dosage: AS APPROPRIATE
     Route: 062
     Dates: end: 20230107
  13. KETOPROFEN [Concomitant]
     Active Substance: KETOPROFEN
     Indication: Osteoarthritis
  14. KETOPROFEN [Concomitant]
     Active Substance: KETOPROFEN
     Indication: Osteoarthritis
  15. CARBOCYSTEINE [Concomitant]
     Active Substance: CARBOCYSTEINE
     Indication: Bronchitis chronic
     Dosage: 1500 MG/3 DIVIDED DOSES
     Route: 048
     Dates: start: 20230105, end: 20230107
  16. CARBOCYSTEINE [Concomitant]
     Active Substance: CARBOCYSTEINE
     Indication: Cough
  17. CARBOCYSTEINE [Concomitant]
     Active Substance: CARBOCYSTEINE
     Indication: Productive cough
  18. CARBOCYSTEINE [Concomitant]
     Active Substance: CARBOCYSTEINE
     Indication: Dyspnoea
  19. TOZINAMERAN [Concomitant]
     Active Substance: TOZINAMERAN
     Indication: COVID-19 immunisation
     Dosage: 0.3 ML
     Route: 030
     Dates: start: 20220905, end: 20220905

REACTIONS (13)
  - Thrombosis [Fatal]
  - Interstitial lung disease [Fatal]
  - Chest discomfort [Fatal]
  - Cough [Fatal]
  - Productive cough [Fatal]
  - Dyspnoea [Fatal]
  - Condition aggravated [Fatal]
  - Cardio-respiratory arrest [Fatal]
  - Dyspnoea exertional [Fatal]
  - Diarrhoea [Recovered/Resolved]
  - Pruritus [Not Recovered/Not Resolved]
  - Bronchitis chronic [Not Recovered/Not Resolved]
  - Pneumonia [Not Recovered/Not Resolved]

NARRATIVE: CASE EVENT DATE: 20220913
